FAERS Safety Report 25021765 (Version 2)
Quarter: 2025Q2

REPORT INFORMATION
  Report Type: Report from Study
  Country: US (occurrence: US)
  Receive Date: 20250228
  Receipt Date: 20250407
  Transmission Date: 20250717
  Serious: Yes (Other)
  Sender: TAKEDA
  Company Number: US-TAKEDA-2025TUS020175

PATIENT
  Sex: Male
  Weight: 80.998 kg

DRUGS (2)
  1. BRIGATINIB [Suspect]
     Active Substance: BRIGATINIB
     Indication: Metastases to lung
     Dosage: 180 MILLIGRAM, QD
  2. BRIGATINIB [Suspect]
     Active Substance: BRIGATINIB
     Indication: Colon cancer
     Dosage: 180 MILLIGRAM, QD

REACTIONS (4)
  - Prostate cancer [Unknown]
  - Pulmonary embolism [Unknown]
  - Pain [Unknown]
  - Dyspnoea [Unknown]
